FAERS Safety Report 4869750-7 (Version None)
Quarter: 2005Q4

REPORT INFORMATION
  Report Type: 
  Country: None (occurrence: None)
  Receive Date: 20051223
  Receipt Date: 20051214
  Transmission Date: 20060501
  Serious: Yes (Hospitalization)
  Sender: FDA-Public Use
  Company Number: 2005BI016757

PATIENT
  Age: 70 Year
  Sex: Male
  Weight: 108.4097 kg

DRUGS (17)
  1. ZEVALIN [Suspect]
     Indication: LYMPHOMA
     Dosage: 1X; IV
     Route: 042
     Dates: start: 20050809, end: 20050809
  2. PRILOSEC [Concomitant]
  3. BUMEX [Concomitant]
  4. NORVASC [Concomitant]
  5. METOPROLOL [Concomitant]
  6. ALLOPURINOL [Concomitant]
  7. COLCHICINE [Concomitant]
  8. COUMADIN [Concomitant]
  9. PHOSLO [Concomitant]
  10. PERCOCET [Concomitant]
  11. RITUXIMAB [Concomitant]
  12. FLODARA [Concomitant]
  13. LEUKERAN [Concomitant]
  14. COLACE [Concomitant]
  15. PROTONIX [Concomitant]
  16. BISOPROLOL [Concomitant]
  17. SLO MAG [Concomitant]

REACTIONS (1)
  - LUNG INFECTION PSEUDOMONAL [None]
